FAERS Safety Report 9131775 (Version 1)
Quarter: 2013Q1

REPORT INFORMATION
  Report Type: Report from Study
  Country: US (occurrence: US)
  Receive Date: 20130301
  Receipt Date: 20130301
  Transmission Date: 20140127
  Serious: No
  Sender: FDA-Public Use
  Company Number: US-MYLANLABS-2012S1020319

PATIENT
  Age: 16 Year
  Sex: Male
  Weight: 72.58 kg

DRUGS (3)
  1. CLARAVIS [Suspect]
     Indication: ACNE
  2. CLARAVIS [Suspect]
     Indication: ACNE
  3. AMNESTEEM CAPSULES [Suspect]
     Indication: ACNE
     Route: 048
     Dates: start: 20120730

REACTIONS (2)
  - Aspartate aminotransferase increased [Not Recovered/Not Resolved]
  - Alanine aminotransferase increased [Not Recovered/Not Resolved]
